FAERS Safety Report 8518464-0 (Version None)
Quarter: 2012Q3

REPORT INFORMATION
  Report Type: 
  Country: None (occurrence: None)
  Receive Date: 20120718
  Receipt Date: 20120322
  Transmission Date: 20120928
  Serious: No
  Sender: FDA-Public Use
  Company Number: US-BRISTOL-MYERS SQUIBB COMPANY-16470858

PATIENT
  Age: 87 Year
  Sex: Male

DRUGS (8)
  1. LISINOPRIL [Concomitant]
  2. VITAMIN D [Concomitant]
  3. LEVOXYL [Concomitant]
  4. COUMADIN [Suspect]
     Dosage: RECEIVING FOR 50 YEARS
  5. TOPROL-XL [Concomitant]
  6. DIGOXIN [Concomitant]
  7. PRAVACHOL [Concomitant]
  8. KEPPRA [Concomitant]

REACTIONS (1)
  - INTERNATIONAL NORMALISED RATIO DECREASED [None]
